FAERS Safety Report 9831358 (Version 2)
Quarter: 2014Q1

REPORT INFORMATION
  Report Type: Spontaneous
  Country: JP (occurrence: JP)
  Receive Date: 20140121
  Receipt Date: 20140203
  Transmission Date: 20141002
  Serious: Yes (Hospitalization, Other)
  Sender: FDA-Public Use
  Company Number: JP-ROCHE-1334545

PATIENT
  Age: 46 Year
  Sex: Female

DRUGS (3)
  1. AVASTIN [Suspect]
     Indication: BREAST CANCER METASTATIC
     Route: 041
     Dates: start: 20131202, end: 20131202
  2. AVASTIN [Suspect]
     Route: 041
     Dates: start: 20140116, end: 20140116
  3. PACLITAXEL [Suspect]
     Indication: BREAST CANCER METASTATIC
     Dosage: DOSAGE IS UNCERTAIN
     Route: 041
     Dates: start: 20140116, end: 20140116

REACTIONS (2)
  - Melaena [Recovering/Resolving]
  - Respiratory failure [Unknown]
